FAERS Safety Report 19646672 (Version 1)
Quarter: 2021Q3

REPORT INFORMATION
  Report Type: Spontaneous
  Country: IN (occurrence: IN)
  Receive Date: 20210802
  Receipt Date: 20210802
  Transmission Date: 20211014
  Serious: Yes (Hospitalization)
  Sender: FDA-Public Use
  Company Number: IN-MYLANLABS-2021M1046361

PATIENT
  Age: 41 Year
  Sex: Male
  Weight: 63 kg

DRUGS (3)
  1. ATRACURIUM [Suspect]
     Active Substance: ATRACURIUM
     Indication: GENERAL ANAESTHESIA
     Dosage: 30 MILLIGRAM
     Route: 013
  2. FENTANYL. [Suspect]
     Active Substance: FENTANYL
     Indication: GENERAL ANAESTHESIA
     Dosage: 100 MICROGRAM
     Route: 013
  3. PROPOFOL. [Suspect]
     Active Substance: PROPOFOL
     Indication: GENERAL ANAESTHESIA
     Dosage: 10 MILLILITER
     Route: 013

REACTIONS (2)
  - Incorrect route of product administration [Recovered/Resolved]
  - Accidental exposure to product [Recovered/Resolved]
